FAERS Safety Report 6687509-5 (Version None)
Quarter: 2010Q2

REPORT INFORMATION
  Report Type: 
  Country: None (occurrence: None)
  Receive Date: 20100419
  Receipt Date: 20100120
  Transmission Date: 20101027
  Serious: No
  Sender: FDA-Public Use
  Company Number: US-ABBOTT-10P-163-0621964-00

PATIENT
  Sex: Female
  Weight: 23.608 kg

DRUGS (2)
  1. LUPRON DEPOT-PED [Suspect]
     Indication: PRECOCIOUS PUBERTY
     Dosage: RECENT DOSE RECEIVED 22 DEC 2009
     Route: 030
     Dates: start: 20091001
  2. ALBUTEROL [Concomitant]
     Indication: SEASONAL ALLERGY

REACTIONS (3)
  - ANGER [None]
  - DISTURBANCE IN ATTENTION [None]
  - PERSONALITY CHANGE [None]
